FAERS Safety Report 16033929 (Version 2)
Quarter: 2019Q2

REPORT INFORMATION
  Report Type: Spontaneous
  Country: US (occurrence: US)
  Receive Date: 20190305
  Receipt Date: 20190607
  Transmission Date: 20190711
  Serious: No
  Sender: FDA-Public Use
  Company Number: US-BIOGEN-2019BI00703510

PATIENT
  Sex: Female

DRUGS (1)
  1. TYSABRI [Suspect]
     Active Substance: NATALIZUMAB
     Indication: MULTIPLE SCLEROSIS
     Route: 065
     Dates: start: 20150720

REACTIONS (7)
  - Hemiparesis [Unknown]
  - Gait disturbance [Unknown]
  - Muscle spasticity [Unknown]
  - Balance disorder [Unknown]
  - Back pain [Unknown]
  - General physical health deterioration [Unknown]
  - Muscle rigidity [Unknown]
